FAERS Safety Report 4294249-9 (Version None)
Quarter: 2004Q1

REPORT INFORMATION
  Report Type: 
  Country: None (occurrence: None)
  Receive Date: 20040211
  Receipt Date: 20030709
  Transmission Date: 20041129
  Serious: No
  Sender: FDA-Public Use
  Company Number: US-BRISTOL-MYERS SQUIBB COMPANY-12321105

PATIENT
  Age: 73 Year
  Sex: Female
  Weight: 73 kg

DRUGS (3)
  1. ULTRAVATE [Suspect]
     Indication: DERMATITIS CONTACT
     Route: 061
     Dates: start: 20030703, end: 20030704
  2. LOTREL [Concomitant]
  3. LEVOXYL [Concomitant]

REACTIONS (1)
  - APPLICATION SITE BURNING [None]
